FAERS Safety Report 11145094 (Version 2)
Quarter: 2015Q3

REPORT INFORMATION
  Report Type: Spontaneous
  Country: US (occurrence: US)
  Receive Date: 20150526
  Receipt Date: 20150704
  Transmission Date: 20151125
  Serious: Yes (Other)
  Sender: FDA-Public Use
  Company Number: US-AUROBINDO-AUR-APL-2015-04478

PATIENT

DRUGS (1)
  1. PIPERACILLIN+TAZOBACTAM INJECTION [Suspect]
     Active Substance: PIPERACILLIN SODIUM\TAZOBACTAM SODIUM
     Indication: PRODUCT USED FOR UNKNOWN INDICATION
     Dosage: UNK
     Route: 042

REACTIONS (9)
  - Pyrexia [Unknown]
  - Thrombocytopenia [Unknown]
  - Rash [Unknown]
  - Leukopenia [Unknown]
  - Transaminases increased [Unknown]
  - Laboratory test abnormal [Unknown]
  - Eosinophilia [Unknown]
  - Neutropenia [Unknown]
  - Blood disorder [Unknown]
